FAERS Safety Report 8280482-8 (Version None)
Quarter: 2012Q2

REPORT INFORMATION
  Report Type: 
  Country: None (occurrence: None)
  Receive Date: 20120412
  Receipt Date: 20120104
  Transmission Date: 20120825
  Serious: No
  Sender: FDA-Public Use
  Company Number: US-ASTRAZENECA-2012SE00923

PATIENT
  Sex: Male

DRUGS (4)
  1. NEXIUM [Suspect]
     Dosage: 1 CAPSULE
     Route: 048
  2. NEXIUM [Suspect]
     Indication: GALLBLADDER POLYP
     Dosage: 2 CAPSULES PER DAY
     Route: 048
  3. NEXIUM [Suspect]
     Dosage: 1 CAPSULE
     Route: 048
  4. NEXIUM [Suspect]
     Indication: ABDOMINAL PAIN UPPER
     Dosage: 2 CAPSULES PER DAY
     Route: 048

REACTIONS (2)
  - DRUG INEFFECTIVE [None]
  - OFF LABEL USE [None]
